FAERS Safety Report 5165872-4 (Version None)
Quarter: 2006Q4

REPORT INFORMATION
  Report Type: 
  Country: None (occurrence: None)
  Receive Date: 20061128
  Receipt Date: 20061024
  Transmission Date: 20070319
  Serious: Yes (Death, Life-Threatening, Hospitalization)
  Sender: FDA-Public Use
  Company Number: 2006SP004961

PATIENT
  Age: 39 Year
  Sex: Male
  Weight: 54 kg

DRUGS (5)
  1. PEG-INTRON [Suspect]
     Indication: HEPATITIS C
     Dosage: 80 MCG; QW
     Dates: start: 20061020
  2. REBETOL [Suspect]
     Indication: HEPATITIS C
     Dosage: 400 MG; BID
     Dates: start: 20061020
  3. METHADONE HCL [Concomitant]
  4. NOVALGIN [Concomitant]
  5. BENZODIAZEPINES [Concomitant]

REACTIONS (19)
  - ACUTE HEPATIC FAILURE [None]
  - AGITATION [None]
  - BLOOD PRESSURE SYSTOLIC INCREASED [None]
  - BODY TEMPERATURE INCREASED [None]
  - BRADYCARDIA [None]
  - CATHETER SITE HAEMORRHAGE [None]
  - CHEST X-RAY ABNORMAL [None]
  - CONVULSION [None]
  - CYANOSIS [None]
  - GENERAL PHYSICAL HEALTH DETERIORATION [None]
  - HAEMORRHAGIC DIATHESIS [None]
  - HEART RATE INCREASED [None]
  - LEUKOCYTOSIS [None]
  - MULTI-ORGAN FAILURE [None]
  - POISONING [None]
  - PULSE ABSENT [None]
  - RENAL FAILURE ACUTE [None]
  - RESPIRATORY ARREST [None]
  - RHABDOMYOLYSIS [None]
